FAERS Safety Report 23137905 (Version 2)
Quarter: 2023Q4

REPORT INFORMATION
  Report Type: Spontaneous
  Country: CO (occurrence: CO)
  Receive Date: 20231102
  Receipt Date: 20231215
  Transmission Date: 20240109
  Serious: Yes (Death)
  Sender: FDA-Public Use
  Company Number: CO-AMGEN-COLSP2023191184

PATIENT
  Age: 64 Year
  Sex: Female

DRUGS (16)
  1. PEGFILGRASTIM [Suspect]
     Active Substance: PEGFILGRASTIM
     Indication: Pancytopenia
     Dosage: UNK
     Route: 065
     Dates: start: 2002
  2. PAZOPANIB [Concomitant]
     Active Substance: PAZOPANIB
     Indication: Sarcoma
     Dosage: 800 MILLIGRAM, QD
     Route: 048
  3. GEMCITABINE [Concomitant]
     Active Substance: GEMCITABINE
     Indication: Sarcoma
     Dosage: 1,600 MG (1,000 MG/M2)
     Route: 042
  4. LOSARTAN [Concomitant]
     Active Substance: LOSARTAN
     Indication: Sarcoma
  5. AMLODIPINE [Concomitant]
     Active Substance: AMLODIPINE BESYLATE
     Indication: Sarcoma
  6. PIPERACILLIN [Concomitant]
     Active Substance: PIPERACILLIN
  7. TAZOBACTAM [Concomitant]
     Active Substance: TAZOBACTAM
  8. VANCOMYCIN [Concomitant]
     Active Substance: VANCOMYCIN
  9. MEROPENEM [Concomitant]
     Active Substance: MEROPENEM
     Indication: Pyrexia
  10. MEROPENEM [Concomitant]
     Active Substance: MEROPENEM
     Indication: Pancytopenia
  11. CASPOFUNGIN [Concomitant]
     Active Substance: CASPOFUNGIN
     Indication: Pyrexia
  12. CASPOFUNGIN [Concomitant]
     Active Substance: CASPOFUNGIN
     Indication: Pancytopenia
  13. DOXORUBICIN [Concomitant]
     Active Substance: DOXORUBICIN
     Indication: Amputation
  14. MESNA [Concomitant]
     Active Substance: MESNA
  15. IFOSFAMIDE [Concomitant]
     Active Substance: IFOSFAMIDE
  16. DACARBAZINE [Concomitant]
     Active Substance: DACARBAZINE

REACTIONS (1)
  - Respiratory disorder [Fatal]

NARRATIVE: CASE EVENT DATE: 20221101
